FAERS Safety Report 15489256 (Version 1)
Quarter: 2018Q4

REPORT INFORMATION
  Report Type: Spontaneous
  Country: US (occurrence: US)
  Receive Date: 20181011
  Receipt Date: 20181011
  Transmission Date: 20190205
  Serious: No
  Sender: FDA-Public Use
  Company Number: US-AMNEAL PHARMACEUTICALS-2018AMN00447

PATIENT
  Sex: Female

DRUGS (2)
  1. VIGABATRIN. [Suspect]
     Active Substance: VIGABATRIN
     Indication: EPILEPSY
     Dosage: 10 ML, 1X/DAY
     Route: 048
  2. VIGABATRIN. [Suspect]
     Active Substance: VIGABATRIN
     Dosage: 20 ML, 1X/DAY

REACTIONS (1)
  - Adverse event [Unknown]
